FAERS Safety Report 5367730-9 (Version None)
Quarter: 2007Q2

REPORT INFORMATION
  Report Type: 
  Country: None (occurrence: None)
  Receive Date: 20070622
  Receipt Date: 20070326
  Transmission Date: 20071010
  Serious: No
  Sender: FDA-Public Use
  Company Number: US-ASTRAZENECA-2007UW06054

PATIENT
  Age: 19 Month
  Sex: Male
  Weight: 11.8 kg

DRUGS (3)
  1. PULMICORT RESPULES [Suspect]
     Indication: ASTHMA
     Route: 055
     Dates: start: 20061001
  2. PULMICORT RESPULES [Suspect]
     Route: 055
     Dates: start: 20070201
  3. XOPENEX [Concomitant]
     Indication: ASTHMA

REACTIONS (3)
  - IMMUNISATION REACTION [None]
  - PYREXIA [None]
  - WEIGHT GAIN POOR [None]
